FAERS Safety Report 14615520 (Version 2)
Quarter: 2018Q2

REPORT INFORMATION
  Report Type: Spontaneous
  Country: FR (occurrence: FR)
  Receive Date: 20180308
  Receipt Date: 20180515
  Transmission Date: 20180711
  Serious: Yes (Death, Life-Threatening, Hospitalization, Other)
  Sender: FDA-Public Use
  Company Number: FR-BRISTOL-MYERS SQUIBB COMPANY-BMS-2018-020921

PATIENT
  Age: 79 Year
  Sex: Male

DRUGS (1)
  1. SPRYCEL [Suspect]
     Active Substance: DASATINIB
     Indication: CHRONIC MYELOID LEUKAEMIA
     Dosage: 70 MG, DAILY
     Route: 048
     Dates: start: 20150529, end: 20180203

REACTIONS (3)
  - Chylothorax [Recovering/Resolving]
  - Prescribed underdose [Unknown]
  - Death [Fatal]

NARRATIVE: CASE EVENT DATE: 20180201
